FAERS Safety Report 6172321-6 (Version None)
Quarter: 2009Q2

REPORT INFORMATION
  Report Type: 
  Country: None (occurrence: None)
  Receive Date: 20090429
  Receipt Date: 20080722
  Transmission Date: 20091009
  Serious: No
  Sender: FDA-Public Use
  Company Number: A0738855A

PATIENT
  Age: 53 Year
  Sex: Female

DRUGS (4)
  1. AMERGE [Suspect]
     Indication: MIGRAINE
     Route: 048
     Dates: end: 20080101
  2. IMITREX [Suspect]
     Indication: MIGRAINE
     Dosage: 6MG AS REQUIRED
     Route: 058
     Dates: start: 19950101, end: 20080101
  3. IMITREX [Suspect]
     Route: 048
     Dates: end: 20080101
  4. NO CONCURRENT MEDICATION [Concomitant]

REACTIONS (5)
  - ABDOMINAL DISCOMFORT [None]
  - DRUG INEFFECTIVE [None]
  - FATIGUE [None]
  - HEADACHE [None]
  - INJECTION SITE PAIN [None]
